FAERS Safety Report 7441676-4 (Version None)
Quarter: 2011Q2

REPORT INFORMATION
  Report Type: 
  Country: None (occurrence: None)
  Receive Date: 20110425
  Receipt Date: 20110425
  Transmission Date: 20111010
  Serious: Yes (Other)
  Sender: FDA-Public Use
  Company Number: None

PATIENT
  Age: 53 Year
  Sex: Female
  Weight: 99.7913 kg

DRUGS (1)
  1. PRAMIPEXOLE DIHYDROCHLORIDE [Suspect]
     Indication: RESTLESS LEGS SYNDROME
     Dosage: 1/2 PILL ONCE A DAY PO
     Route: 048
     Dates: start: 20110403, end: 20110405

REACTIONS (8)
  - PAIN [None]
  - DYSURIA [None]
  - RASH ERYTHEMATOUS [None]
  - SKIN DISORDER [None]
  - FLATULENCE [None]
  - PRURITUS [None]
  - URINARY RETENTION [None]
  - DYSPNOEA [None]
